FAERS Safety Report 6915299-7 (Version None)
Quarter: 2010Q3

REPORT INFORMATION
  Report Type: 
  Country: None (occurrence: None)
  Receive Date: 20100809
  Receipt Date: 20091015
  Transmission Date: 20110219
  Serious: No
  Sender: FDA-Public Use
  Company Number: US-ABBOTT-09P-163-0604246-00

PATIENT
  Sex: Female
  Weight: 70.37 kg

DRUGS (11)
  1. DEPAKOTE ER [Suspect]
     Indication: BIPOLAR DISORDER
     Dosage: 500MG X2 PILLS AT BEDTIME
     Route: 048
     Dates: start: 20090601, end: 20091016
  2. DEPAKOTE ER [Suspect]
     Indication: ANXIETY
     Route: 048
  3. DEPAKOTE ER [Suspect]
     Indication: PERSONALITY DISORDER
     Dosage: 500MG X 1 PILL AT BEDTIME
     Route: 048
     Dates: start: 20091016
  4. ZOLOFT [Concomitant]
     Indication: PRODUCT USED FOR UNKNOWN INDICATION
     Route: 048
  5. LORAZEPAM [Concomitant]
     Indication: PRODUCT USED FOR UNKNOWN INDICATION
     Route: 048
  6. GLIPIZIDE [Concomitant]
     Indication: DIABETES MELLITUS
  7. JANIA [Concomitant]
     Indication: DIABETES MELLITUS
  8. OXYBUTIN [Concomitant]
     Indication: BLADDER DISORDER
  9. VITAMIN D [Concomitant]
     Indication: PRODUCT USED FOR UNKNOWN INDICATION
  10. SYNTHROID [Concomitant]
     Indication: THYROIDECTOMY
  11. UNKNOWN GENERIC BONE MEDICATION [Concomitant]
     Indication: BONE DISORDER

REACTIONS (1)
  - ALOPECIA [None]
